FAERS Safety Report 5052885-6 (Version None)
Quarter: 2006Q3

REPORT INFORMATION
  Report Type: 
  Country: None (occurrence: None)
  Receive Date: 20060712
  Receipt Date: 20060628
  Transmission Date: 20061208
  Serious: Yes (Death)
  Sender: FDA-Public Use
  Company Number: 2006S1006051

PATIENT
  Age: 59 Year
  Sex: Male

DRUGS (12)
  1. CLOZAPINE [Suspect]
     Dosage: 100 MG; QAM; PO;   700 MG; HS; PO
     Route: 048
     Dates: start: 20050914, end: 20060601
  2. CLOZAPINE [Suspect]
     Dosage: 100 MG; QAM; PO;   700 MG; HS; PO
     Route: 048
     Dates: start: 20050914, end: 20060601
  3. PREVACID (CON.) [Concomitant]
  4. LANTUS (CON.) [Concomitant]
  5. XENADERM (CON.) [Concomitant]
  6. LISINOPRIL (CON.) [Concomitant]
  7. ARICEPT (CON.) [Concomitant]
  8. NAMENDA (CON.) [Concomitant]
  9. KCL (CON.) [Concomitant]
  10. GLYBURIDE (CON.) [Concomitant]
  11. CLONAZEPAM (CON.) [Concomitant]
  12. FOLBEE (CON.) [Concomitant]

REACTIONS (1)
  - DEATH [None]
